FAERS Safety Report 8207953-4 (Version None)
Quarter: 2012Q1

REPORT INFORMATION
  Report Type: 
  Country: None (occurrence: None)
  Receive Date: 20120314
  Receipt Date: 20120309
  Transmission Date: 20120608
  Serious: No
  Sender: FDA-Public Use
  Company Number: US-PFIZER INC-2012022338

PATIENT
  Sex: Male
  Weight: 92.517 kg

DRUGS (1)
  1. LIPITOR [Suspect]
     Indication: ARTERIOSCLEROSIS
     Dosage: UNK, 1X/DAY
     Route: 048

REACTIONS (1)
  - BLOOD CREATINE PHOSPHOKINASE INCREASED [None]
